FAERS Safety Report 5277645-2 (Version None)
Quarter: 2007Q1

REPORT INFORMATION
  Report Type: 
  Country: None (occurrence: None)
  Receive Date: 20070327
  Receipt Date: 20070322
  Transmission Date: 20070707
  Serious: Yes (Other)
  Sender: FDA-Public Use
  Company Number: ES-BOEHRINGER INGELHEIM PHARMACEUTICALS, INC.-2007-ES-00043ES

PATIENT
  Age: 49 Year
  Sex: Male
  Weight: 75 kg

DRUGS (4)
  1. VIRAMUNE [Suspect]
     Indication: HIV INFECTION
     Route: 048
     Dates: start: 20061001, end: 20070111
  2. AMLODIPINE [Suspect]
     Indication: ESSENTIAL HYPERTENSION
     Route: 048
  3. LISINOPRIL [Concomitant]
     Indication: ESSENTIAL HYPERTENSION
     Route: 048
  4. TERTENSIF [Concomitant]
     Indication: ESSENTIAL HYPERTENSION
     Route: 048
     Dates: start: 20030101, end: 20070123

REACTIONS (1)
  - HYPERTENSION [None]
